FAERS Safety Report 17079568 (Version 1)
Quarter: 2019Q4

REPORT INFORMATION
  Report Type: Spontaneous
  Country: US (occurrence: US)
  Receive Date: 20191127
  Receipt Date: 20191127
  Transmission Date: 20200122
  Serious: Yes (Other)
  Sender: FDA-Public Use
  Company Number: US-SUNOVION-2019SUN005171

PATIENT
  Age: 16 Year
  Sex: Male

DRUGS (2)
  1. LATUDA [Suspect]
     Active Substance: LURASIDONE HYDROCHLORIDE
     Dosage: 40 MG
     Route: 048
  2. ZOLOFT [Concomitant]
     Active Substance: SERTRALINE HYDROCHLORIDE
     Dosage: 100 MG

REACTIONS (4)
  - Blood triglycerides increased [Unknown]
  - Ventricular tachycardia [Unknown]
  - Low density lipoprotein increased [Unknown]
  - High density lipoprotein decreased [Unknown]
